FAERS Safety Report 5919551-3 (Version None)
Quarter: 2008Q4

REPORT INFORMATION
  Report Type: 
  Country: None (occurrence: None)
  Receive Date: 20081015
  Receipt Date: 20071126
  Transmission Date: 20090506
  Serious: No
  Sender: FDA-Public Use
  Company Number: US-BRISTOL-MYERS SQUIBB COMPANY-13909023

PATIENT
  Sex: Male

DRUGS (1)
  1. KENALOG-40 [Suspect]

REACTIONS (6)
  - BLADDER DISORDER [None]
  - DYSPNOEA [None]
  - INJECTION SITE PAIN [None]
  - INJECTION SITE WARMTH [None]
  - INTESTINAL FUNCTIONAL DISORDER [None]
  - VISION BLURRED [None]
